FAERS Safety Report 6760829-1 (Version None)
Quarter: 2010Q2

REPORT INFORMATION
  Report Type: 
  Country: None (occurrence: None)
  Receive Date: 20100607
  Receipt Date: 20100607
  Transmission Date: 20101027
  Serious: No
  Sender: FDA-Public Use
  Company Number: None

PATIENT
  Age: 48 Year
  Sex: Female
  Weight: 56.6996 kg

DRUGS (1)
  1. CONCERTA [Suspect]
     Indication: ATTENTION DEFICIT/HYPERACTIVITY DISORDER
     Dosage: 18 MG 1 PER DAY PO
     Route: 048
     Dates: start: 20050601, end: 20100101

REACTIONS (3)
  - PRODUCT QUALITY ISSUE [None]
  - ROSACEA [None]
  - SCAR [None]
